FAERS Safety Report 22600762 (Version 1)
Quarter: 2023Q2

REPORT INFORMATION
  Report Type: Spontaneous
  Country: CN (occurrence: None)
  Receive Date: 20230614
  Receipt Date: 20230614
  Transmission Date: 20230722
  Serious: Yes (Hospitalization, Other)
  Sender: FDA-Public Use
  Company Number: 2023A137566

PATIENT
  Age: 57 Year
  Sex: Female

DRUGS (10)
  1. OLAPARIB [Suspect]
     Active Substance: OLAPARIB
     Indication: Ovarian cancer stage IV
     Dosage: 300MG, BID, WITHIN 8 WEEKS
     Route: 048
     Dates: start: 20210613
  2. OLAPARIB [Suspect]
     Active Substance: OLAPARIB
     Indication: Serous cystadenocarcinoma ovary
     Dosage: 300MG, BID, WITHIN 8 WEEKS
     Route: 048
     Dates: start: 20210613
  3. OLAPARIB [Suspect]
     Active Substance: OLAPARIB
     Indication: Ovarian cancer stage IV
  4. OLAPARIB [Suspect]
     Active Substance: OLAPARIB
     Indication: Serous cystadenocarcinoma ovary
  5. PACLITAXEL [Concomitant]
     Active Substance: PACLITAXEL
     Indication: Ovarian cancer stage IV
     Dosage: UNK
     Dates: start: 202010, end: 20210604
  6. PACLITAXEL [Concomitant]
     Active Substance: PACLITAXEL
     Indication: Serous cystadenocarcinoma ovary
     Dosage: UNK
     Dates: start: 202010, end: 20210604
  7. CISPLATIN [Concomitant]
     Active Substance: CISPLATIN
     Indication: Ovarian cancer stage IV
     Dosage: UNK
     Dates: end: 20210604
  8. CISPLATIN [Concomitant]
     Active Substance: CISPLATIN
     Indication: Serous cystadenocarcinoma ovary
     Dosage: UNK
     Dates: end: 20210604
  9. BEVACIZUMAB [Concomitant]
     Active Substance: BEVACIZUMAB
     Indication: Ovarian cancer stage IV
     Dosage: UNK
     Dates: end: 20210604
  10. BEVACIZUMAB [Concomitant]
     Active Substance: BEVACIZUMAB
     Indication: Serous cystadenocarcinoma ovary
     Dosage: UNK
     Dates: end: 20210604

REACTIONS (6)
  - Serous cystadenocarcinoma ovary [Unknown]
  - Ovarian cancer recurrent [Unknown]
  - Metastases to liver [Unknown]
  - Hepatic necrosis [Unknown]
  - Anaemia [Unknown]
  - Platelet count decreased [Unknown]

NARRATIVE: CASE EVENT DATE: 20210601
